FAERS Safety Report 4550366-7 (Version None)
Quarter: 2004Q4

REPORT INFORMATION
  Report Type: 
  Country: None (occurrence: None)
  Receive Date: 20041227
  Receipt Date: 20041008
  Transmission Date: 20050328
  Serious: No
  Sender: FDA-Public Use
  Company Number: US094772

PATIENT
  Age: 69 Year
  Sex: Female
  Weight: 75.8 kg

DRUGS (8)
  1. ARANESP [Suspect]
     Indication: MYELODYSPLASTIC SYNDROME
     Dosage: 1 IN 2 WEEKS
     Dates: start: 20040908, end: 20040922
  2. NIFEDIPINE [Concomitant]
  3. BISOPROLOL FUMARATE [Concomitant]
  4. LISINOPRIL [Concomitant]
  5. TERAZOSIN [Concomitant]
  6. CLONIDINE HCL [Concomitant]
  7. ATORVASTATIN CALCIUM [Concomitant]
  8. GEMFIBROZIL [Concomitant]

REACTIONS (1)
  - BLOOD PRESSURE INCREASED [None]
